FAERS Safety Report 23463244 (Version 1)
Quarter: 2024Q1

REPORT INFORMATION
  Report Type: Report from Study
  Country: US (occurrence: US)
  Receive Date: 20240131
  Receipt Date: 20240131
  Transmission Date: 20240410
  Serious: Yes (Other)
  Sender: FDA-Public Use
  Company Number: US-PFIZER INC-PV202300177165

PATIENT
  Age: 57 Year
  Sex: Male

DRUGS (1)
  1. BRAFTOVI [Suspect]
     Active Substance: ENCORAFENIB
     Dosage: UNK

REACTIONS (9)
  - Retinal oedema [Recovering/Resolving]
  - Vision blurred [Recovering/Resolving]
  - Constipation [Unknown]
  - Anal pruritus [Unknown]
  - Rash [Unknown]
  - Arthropathy [Unknown]
  - Arthralgia [Unknown]
  - Feeling abnormal [Unknown]
  - Hypoaesthesia [Unknown]
